FAERS Safety Report 5483756-9 (Version None)
Quarter: 2007Q4

REPORT INFORMATION
  Report Type: 
  Country: None (occurrence: None)
  Receive Date: 20071012
  Receipt Date: 20071003
  Transmission Date: 20080405
  Serious: Yes (Death, Hospitalization)
  Sender: FDA-Public Use
  Company Number: A0646596A

PATIENT
  Age: 77 Year
  Sex: Male
  Weight: 77.3 kg

DRUGS (1)
  1. ARIXTRA [Suspect]
     Route: 058
     Dates: start: 20070508, end: 20070512

REACTIONS (4)
  - DRUG INEFFECTIVE [None]
  - EMBOLISM [None]
  - PULMONARY EMBOLISM [None]
  - WOUND HAEMORRHAGE [None]
